FAERS Safety Report 4436903-1 (Version None)
Quarter: 2004Q3

REPORT INFORMATION
  Report Type: 
  Country: None (occurrence: None)
  Receive Date: 20040830
  Receipt Date: 20040802
  Transmission Date: 20050211
  Serious: Yes (Hospitalization)
  Sender: FDA-Public Use
  Company Number: PHBS2004ES10261

PATIENT
  Age: 78 Year
  Sex: Female

DRUGS (7)
  1. FLUVASTATIN SODIUM [Suspect]
     Indication: HYPERCHOLESTEROLAEMIA
     Dosage: 80 MG, UNK
     Route: 048
     Dates: start: 20030624, end: 20030722
  2. ACETYLSALICYLIC ACID [Concomitant]
     Dosage: 150 MG, UNK
     Dates: start: 20030624, end: 20030729
  3. CLOPIDOGREL [Concomitant]
     Dates: start: 20030624, end: 20030729
  4. CLOPIDOGREL [Concomitant]
     Dates: start: 20030805
  5. CHLORPROPAMIDE [Concomitant]
     Dosage: 250 MG, UNK
     Dates: start: 20030624, end: 20030729
  6. RANITIDINE [Concomitant]
     Dosage: 150 MG, UNK
     Dates: start: 20030624, end: 20030729
  7. ENALAPRIL [Concomitant]
     Dosage: 10 MG, UNK
     Dates: start: 20030624, end: 20030729

REACTIONS (27)
  - ABDOMINAL PAIN [None]
  - ALANINE AMINOTRANSFERASE INCREASED [None]
  - ANOREXIA [None]
  - ASPARTATE AMINOTRANSFERASE INCREASED [None]
  - ASTHENIA [None]
  - BLOOD ALKALINE PHOSPHATASE INCREASED [None]
  - BLOOD CREATINE PHOSPHOKINASE INCREASED [None]
  - BLOOD CREATININE INCREASED [None]
  - BLOOD LACTATE DEHYDROGENASE INCREASED [None]
  - BLOOD UREA INCREASED [None]
  - BLOOD URINE [None]
  - CHOLANGITIS [None]
  - CHOLESTASIS [None]
  - DYSPHAGIA [None]
  - GAMMA-GLUTAMYLTRANSFERASE INCREASED [None]
  - HYPERSENSITIVITY [None]
  - LEUKOCYTOSIS [None]
  - MYOPATHY [None]
  - NEUTROPHILIA [None]
  - PAIN IN EXTREMITY [None]
  - PROTEINURIA [None]
  - PYREXIA [None]
  - RASH ERYTHEMATOUS [None]
  - RENAL FAILURE ACUTE [None]
  - RHABDOMYOLYSIS [None]
  - WEIGHT DECREASED [None]
  - WHITE BLOOD CELLS URINE POSITIVE [None]
